FAERS Safety Report 9264298 (Version 1)
Quarter: 2013Q2

REPORT INFORMATION
  Report Type: Spontaneous
  Country: US (occurrence: US)
  Receive Date: 20130430
  Receipt Date: 20130430
  Transmission Date: 20140414
  Serious: Yes (Other)
  Sender: FDA-Public Use
  Company Number: US-US-EMD SERONO, INC.-7111170

PATIENT
  Sex: Female

DRUGS (2)
  1. REBIF [Suspect]
     Indication: PRODUCT USED FOR UNKNOWN INDICATION
     Route: 058
     Dates: start: 20101210, end: 20120131
  2. REBIF [Suspect]
     Route: 058

REACTIONS (4)
  - Foetal death [Recovered/Resolved]
  - Nausea [Unknown]
  - Breast tenderness [Unknown]
  - Maternal exposure timing unspecified [Recovered/Resolved]
